FAERS Safety Report 19874977 (Version 1)
Quarter: 2021Q3

REPORT INFORMATION
  Report Type: Spontaneous
  Country: CA (occurrence: CA)
  Receive Date: 20210923
  Receipt Date: 20210923
  Transmission Date: 20211014
  Serious: Yes (Life-Threatening, Disabling, Other)
  Sender: FDA-Public Use
  Company Number: CA-SA-2021SA313633

PATIENT
  Age: 60 Year
  Sex: Female

DRUGS (3)
  1. IRBESARTAN. [Suspect]
     Active Substance: IRBESARTAN
     Indication: SECONDARY PROGRESSIVE MULTIPLE SCLEROSIS
  2. GILENYA [Concomitant]
     Active Substance: FINGOLIMOD HYDROCHLORIDE
     Dosage: 0.5 MILLIGRAM, 1 EVERY 1 DAYS
     Route: 048
  3. CELEBREX [Concomitant]
     Active Substance: CELECOXIB

REACTIONS (7)
  - Herpes zoster [Unknown]
  - Post herpetic neuralgia [Unknown]
  - Herpes zoster cutaneous disseminated [Unknown]
  - Multiple sclerosis relapse [Unknown]
  - Contraindicated product administered [Unknown]
  - Product use in unapproved indication [Unknown]
  - Disability [Unknown]
